FAERS Safety Report 16836242 (Version 1)
Quarter: 2019Q3

REPORT INFORMATION
  Report Type: Spontaneous
  Country: SE (occurrence: SE)
  Receive Date: 20190921
  Receipt Date: 20190921
  Transmission Date: 20191005
  Serious: Yes (Hospitalization)
  Sender: FDA-Public Use
  Company Number: SE-009507513-1909SWE006110

PATIENT
  Age: 31 Year
  Sex: Male

DRUGS (2)
  1. LERGIGAN (PROMETHAZINE HYDROCHLORIDE) [Suspect]
     Active Substance: PROMETHAZINE HYDROCHLORIDE
     Dosage: ^BROUGHT A HALF EMPTY PACKAGE OF LERGIGAN (PROMETHAZINE) WITH HIM^
     Route: 048
     Dates: start: 20190121, end: 20190121
  2. MIRTAZAPINE. [Suspect]
     Active Substance: MIRTAZAPINE
     Dosage: ^AT LEAST ONE BLISTER PACK^ WAS FOUND AT HOME
     Route: 048
     Dates: start: 20190121, end: 20190121

REACTIONS (3)
  - Loss of consciousness [Recovering/Resolving]
  - Respiratory arrest [Recovering/Resolving]
  - Overdose [Recovering/Resolving]

NARRATIVE: CASE EVENT DATE: 20190121
